FAERS Safety Report 8170994-X (Version None)
Quarter: 2012Q1

REPORT INFORMATION
  Report Type: 
  Country: None (occurrence: None)
  Receive Date: 20120228
  Receipt Date: 20120215
  Transmission Date: 20120608
  Serious: Yes (Other)
  Sender: FDA-Public Use
  Company Number: JP-JNJFOC-20100204227

PATIENT
  Age: 64 Year
  Sex: Female
  Weight: 49 kg

DRUGS (13)
  1. REMICADE [Suspect]
     Route: 042
     Dates: start: 20100204
  2. REBAMIPIDE [Concomitant]
  3. REMICADE [Suspect]
     Route: 042
     Dates: start: 20091203
  4. PREDNISOLONE [Concomitant]
     Route: 048
     Dates: start: 20081107
  5. REMICADE [Suspect]
     Route: 042
     Dates: start: 20100106
  6. LANSOPRAZOLE [Concomitant]
     Route: 048
  7. ACTONEL [Concomitant]
     Route: 048
  8. REMICADE [Suspect]
     Indication: RHEUMATOID ARTHRITIS
     Route: 042
     Dates: start: 20090911
  9. REMICADE [Suspect]
     Dosage: 6TH INFUSION
     Route: 042
     Dates: start: 20091023
  10. TALION [Concomitant]
     Indication: PROPHYLAXIS
     Route: 048
     Dates: start: 20100204, end: 20100204
  11. METHOTREXATE [Concomitant]
     Route: 048
  12. LOXOPROFEN [Concomitant]
  13. ETANERCEPT [Concomitant]

REACTIONS (6)
  - BLOOD PRESSURE DECREASED [None]
  - CHEST DISCOMFORT [None]
  - ORGANISING PNEUMONIA [None]
  - OXYGEN SATURATION DECREASED [None]
  - INFUSION RELATED REACTION [None]
  - COUGH [None]
